FAERS Safety Report 11510696 (Version 1)
Quarter: 2015Q3

REPORT INFORMATION
  Report Type: Spontaneous
  Country: US (occurrence: US)
  Receive Date: 20150915
  Receipt Date: 20150915
  Transmission Date: 20151125
  Serious: No
  Sender: FDA-Public Use
  Company Number: US-BAYER-2015-417089

PATIENT
  Age: 53 Year
  Sex: Female
  Weight: 113.38 kg

DRUGS (2)
  1. BAYER MIGRAINE FORMULA [Suspect]
     Active Substance: ACETAMINOPHEN\ASPIRIN\CAFFEINE
     Indication: MIGRAINE
     Dosage: 3 DF, UNK
     Route: 048
  2. ALEVE [Suspect]
     Active Substance: NAPROXEN SODIUM
     Indication: MIGRAINE
     Dosage: UNK
     Route: 048

REACTIONS (3)
  - Condition aggravated [Recovered/Resolved]
  - Drug ineffective [None]
  - Product use issue [None]
